FAERS Safety Report 25877298 (Version 1)
Quarter: 2025Q4

REPORT INFORMATION
  Report Type: Spontaneous
  Country: TR (occurrence: TR)
  Receive Date: 20251003
  Receipt Date: 20251003
  Transmission Date: 20260118
  Serious: Yes (Disabling)
  Sender: MACLEODS
  Company Number: TR-MLMSERVICE-20250915-PI647154-00080-1

PATIENT

DRUGS (2)
  1. CARBIDOPA\ENTACAPONE\LEVODOPA [Suspect]
     Active Substance: CARBIDOPA\ENTACAPONE\LEVODOPA
     Indication: Parkinson^s disease
     Dosage: 37.5/150/200 MG
     Route: 065
  2. AMANTADINE [Concomitant]
     Active Substance: AMANTADINE
     Indication: Parkinson^s disease
     Dosage: TOTAL 450 MG/DAY
     Route: 065

REACTIONS (2)
  - On and off phenomenon [Unknown]
  - Dyskinesia [Unknown]
